FAERS Safety Report 23706381 (Version 1)
Quarter: 2024Q2

REPORT INFORMATION
  Report Type: Other
  Country: CA (occurrence: CA)
  Receive Date: 20240404
  Receipt Date: 20240404
  Transmission Date: 20240716
  Serious: Yes (Hospitalization, Other)
  Sender: FDA-Public Use
  Company Number: CA-APOTEX-2024AP004215

PATIENT
  Age: 58 Year
  Sex: Male
  Weight: 81 kg

DRUGS (5)
  1. DEXAMETHASONE [Suspect]
     Active Substance: DEXAMETHASONE
     Indication: Hemiparesis
     Dosage: 7 MILLIGRAM, QD
     Route: 048
  2. TEMODAL [Suspect]
     Active Substance: TEMOZOLOMIDE
     Indication: Glioblastoma multiforme
     Dosage: 300 MILLIGRAM, QD
     Route: 048
  3. AVELUMAB [Suspect]
     Active Substance: AVELUMAB
     Indication: Glioblastoma multiforme
     Dosage: 850 MILLIGRAM
     Route: 042
  4. AVELUMAB [Suspect]
     Active Substance: AVELUMAB
     Dosage: 814 MILLIGRAM
     Route: 042
  5. AXITINIB [Suspect]
     Active Substance: AXITINIB
     Indication: Glioblastoma multiforme
     Dosage: 5 MILLIGRAM, BID
     Route: 048

REACTIONS (1)
  - Febrile neutropenia [Recovered/Resolved]
